FAERS Safety Report 4372826-4 (Version None)
Quarter: 2004Q2

REPORT INFORMATION
  Report Type: 
  Country: None (occurrence: None)
  Receive Date: 20040526
  Receipt Date: 20040511
  Transmission Date: 20050107
  Serious: Yes (Other)
  Sender: FDA-Public Use
  Company Number: 04-168-0121

PATIENT
  Age: 60 Year
  Sex: Female
  Weight: 52 kg

DRUGS (25)
  1. DOXYCYCLINE [Suspect]
     Indication: PNEUMONIA
     Dosage: 100MG IV Q12H
     Route: 042
     Dates: start: 20040417
  2. CEFTRIAXONE [Concomitant]
  3. ZITHROMAX [Concomitant]
  4. WELLBUTRIN [Concomitant]
  5. PREMARIN [Concomitant]
  6. MEPERIDINE HCL [Concomitant]
  7. LEXAPRO [Concomitant]
  8. CEFTRIAXONE SODIUM [Concomitant]
  9. CEFTRIAXONE SODIUM [Concomitant]
  10. FAMOTIDINE [Concomitant]
  11. ACETAMINOPHEN [Concomitant]
  12. AZITHROMYCIN [Concomitant]
  13. AZITHROMYCIN [Concomitant]
  14. BUPROPION HCL [Concomitant]
  15. CEFPODOXIME PROXETIL [Concomitant]
  16. DIPHENHYDRAMINE HCL [Concomitant]
  17. DOXYCYCLINE [Concomitant]
  18. ESCITALOPRAM OXALATE [Concomitant]
  19. ESTROGEN (CONJUGATED) [Concomitant]
  20. ESTROGEN (CONJUGATED) [Concomitant]
  21. ESTROGEN (CONJUGATED) [Concomitant]
  22. IBUPROFEN [Concomitant]
  23. IBUPROFEN [Concomitant]
  24. LORAZEPAM [Concomitant]
  25. MAGNESIUM GLUCONATE [Concomitant]

REACTIONS (13)
  - AGITATION [None]
  - BLOOD PRESSURE INCREASED [None]
  - DYSTONIA [None]
  - HEART RATE INCREASED [None]
  - INFUSION RELATED REACTION [None]
  - MEDICATION ERROR [None]
  - MUSCLE CONTRACTIONS INVOLUNTARY [None]
  - MUSCLE TWITCHING [None]
  - MUSCULOSKELETAL STIFFNESS [None]
  - NERVOUSNESS [None]
  - PAIN IN EXTREMITY [None]
  - RESPIRATORY RATE INCREASED [None]
  - TREMOR [None]
